FAERS Safety Report 5576249-1 (Version None)
Quarter: 2007Q4

REPORT INFORMATION
  Report Type: 
  Country: None (occurrence: None)
  Receive Date: 20071228
  Receipt Date: 20071218
  Transmission Date: 20080405
  Serious: No
  Sender: FDA-Public Use
  Company Number: US-ELI_LILLY_AND_COMPANY-US200710004214

PATIENT
  Age: 66 Year
  Sex: Male

DRUGS (14)
  1. CYMBALTA [Suspect]
     Indication: NEUROPATHY PERIPHERAL
     Dosage: 30 MG, UNK
     Dates: start: 20070101
  2. CYMBALTA [Suspect]
     Dosage: 60 MG, UNK
  3. CYMBALTA [Suspect]
     Dosage: 60 MG, QOD
  4. CYMBALTA [Suspect]
     Dosage: 30 MG, DAILY (1/D)
  5. ATENOLOL [Concomitant]
     Dosage: 50 MG, 2/D
  6. FOLTX [Concomitant]
     Dosage: 1 D/F, DAILY (1/D)
  7. COUMADIN [Concomitant]
  8. CRESTOR [Concomitant]
     Dosage: 20 MG, DAILY (1/D)
  9. TRICOR [Concomitant]
     Dosage: 145 MG, DAILY (1/D)
  10. ALTACE [Concomitant]
     Dosage: 5 MG, DAILY (1/D)
  11. ASPIRIN [Concomitant]
     Dosage: 81 MG, DAILY (1/D)
  12. METFORMIN HCL [Concomitant]
     Dosage: 500 MG, UNK
  13. HYDROCODONE BITARTRATE [Concomitant]
     Indication: PAIN IN EXTREMITY
     Dosage: UNK, AS NEEDED
  14. ENABLEX                            /01760402/ [Concomitant]
     Indication: HYPERTONIC BLADDER
     Dosage: 15 MG, UNK

REACTIONS (1)
  - SOMNOLENCE [None]
